FAERS Safety Report 25882501 (Version 1)
Quarter: 2025Q4

REPORT INFORMATION
  Report Type: Spontaneous
  Country: DZ (occurrence: DZ)
  Receive Date: 20251006
  Receipt Date: 20251006
  Transmission Date: 20260118
  Serious: Yes (Other)
  Sender: EXELA PHARMA SCIENCES
  Company Number: DZ-EXELAPHARMA-2025EXLA00201

PATIENT
  Age: 43 Year
  Sex: Male
  Weight: 95 kg

DRUGS (2)
  1. FENTANYL CITRATE [Suspect]
     Active Substance: FENTANYL CITRATE
     Indication: Anaesthesia
     Dosage: 2.5 MICROGRAMS.KG-1 (200 MICROGRAMS)
     Route: 042
  2. SEVOFLURANE [Suspect]
     Active Substance: SEVOFLURANE
     Indication: Anaesthesia
     Dosage: 8% WITH A FLOW RATE OF 6 L MIN-1 OF O2

REACTIONS (2)
  - Sinus bradycardia [Recovered/Resolved]
  - Blood pressure decreased [Recovered/Resolved]
